FAERS Safety Report 5655286-2 (Version None)
Quarter: 2008Q1

REPORT INFORMATION
  Report Type: 
  Country: None (occurrence: None)
  Receive Date: 20080307
  Receipt Date: 20080305
  Transmission Date: 20080703
  Serious: Yes (Other)
  Sender: FDA-Public Use
  Company Number: B0511224A

PATIENT
  Age: 70 Year

DRUGS (1)
  1. LEUKERAN [Suspect]
     Dosage: 10MG TWICE PER DAY
     Route: 048
     Dates: start: 20080217

REACTIONS (2)
  - HYPERTENSION [None]
  - PARAESTHESIA [None]
